FAERS Safety Report 14725377 (Version 1)
Quarter: 2018Q2

REPORT INFORMATION
  Report Type: Spontaneous
  Country: FR (occurrence: FR)
  Receive Date: 20180405
  Receipt Date: 20180405
  Transmission Date: 20180711
  Serious: Yes (Death)
  Sender: FDA-Public Use
  Company Number: FR-TEVA-2018-FR-878848

PATIENT
  Age: 1 Month
  Sex: Female

DRUGS (16)
  1. VOGALENE [Suspect]
     Active Substance: METOPIMAZINE
     Indication: NAUSEA
     Dosage: LYOPHILISAT ORAL
     Route: 064
  2. BROMAZEPAM ARROW 6 MG, [Suspect]
     Active Substance: BROMAZEPAM
     Indication: ANXIETY
     Dosage: COMPRIM? QUADRIS?CABLE
     Route: 064
  3. PIVALONE 1 POUR CENT, [Suspect]
     Active Substance: TIXOCORTOL PIVALATE
     Indication: RHINITIS
     Dosage: SUSPENSION NASALE
     Route: 064
  4. ACETYLCYSTEINE BIOGARAN [Suspect]
     Active Substance: ACETYLCYSTEINE
     Indication: BRONCHITIS
     Route: 064
  5. SPASFON LYOC [Suspect]
     Active Substance: PHLOROGLUCINOL
     Indication: DYSPEPSIA
     Dosage: LYOPHILISAT ORAL
     Route: 064
  6. AMOXICILLINE ALMUS [Suspect]
     Active Substance: AMOXICILLIN
     Indication: ASTHMA
     Dosage: COMPRIM? PELLICUL? DISPERSIBLE
     Route: 064
  7. ANAFRANIL [Suspect]
     Active Substance: CLOMIPRAMINE HYDROCHLORIDE
     Indication: DEPRESSION
     Dosage: COMPRIM? ENROB?
     Route: 064
  8. KETOPROFEN. [Suspect]
     Active Substance: KETOPROFEN
     Indication: SPINAL PAIN
     Route: 064
  9. CARBOCISTEINE BIOGARAN [Suspect]
     Active Substance: CARBOCYSTEINE
     Indication: BRONCHITIS
     Route: 064
  10. UVESTEROL D 5000 UI/ML, [Suspect]
     Active Substance: ERGOCALCIFEROL
     Indication: PROPHYLAXIS
     Dosage: SOLUTION BUVABLE
     Route: 048
  11. OMEPRAZOLE DELAYED RELEASE CAPSULES,10 MG, 20 MG AND 30 MG [Suspect]
     Active Substance: OMEPRAZOLE
     Indication: GASTROOESOPHAGEAL REFLUX DISEASE
     Route: 064
  12. SERETIDE [Suspect]
     Active Substance: FLUTICASONE PROPIONATE\SALMETEROL XINAFOATE
     Indication: ASTHMA
     Route: 064
  13. NECYRANE, [Suspect]
     Active Substance: RITIOMETAN
     Indication: NASOPHARYNGITIS
     Dosage: SOLUTION POUR PULV?RISATION NASALE
     Route: 064
  14. MACROGOL BIOGARAN [Suspect]
     Active Substance: POLYETHYLENE GLYCOLS
     Indication: CONSTIPATION
     Dosage: POUDRE POUR SOLUTION BUVABLE EN SACHET-DOSE
     Route: 064
  15. KLIPAL CODEINE 600 MG/50 MG, [Suspect]
     Active Substance: ACETAMINOPHEN\CODEINE PHOSPHATE
     Indication: SPINAL PAIN
     Dosage: COMPRIM?
     Route: 064
  16. IMODIUM [Suspect]
     Active Substance: LOPERAMIDE HYDROCHLORIDE
     Indication: DIARRHOEA
     Dosage: SI BESOIN
     Route: 064

REACTIONS (1)
  - Death [Fatal]
